FAERS Safety Report 9060351 (Version 6)
Quarter: 2014Q1

REPORT INFORMATION
  Report Type: Spontaneous
  Country: US (occurrence: US)
  Receive Date: 20130212
  Receipt Date: 20140220
  Transmission Date: 20141002
  Serious: Yes (Hospitalization, Other)
  Sender: FDA-Public Use
  Company Number: US-009507513-1302USA004390

PATIENT
  Sex: Female
  Weight: 58.5 kg

DRUGS (3)
  1. FOSAMAX [Suspect]
     Indication: OSTEOPOROSIS PROPHYLAXIS
     Dosage: 70 MG, QW
     Route: 048
     Dates: start: 20030930
  2. ALENDRONATE SODIUM [Suspect]
     Indication: OSTEOPOROSIS PROPHYLAXIS
     Dosage: 70 MG, UNK
     Route: 048
     Dates: start: 20100426, end: 20120316
  3. ACETAMINOPHEN (+) OXYCODONE HYDROCHLORIDE [Concomitant]
     Dosage: UNK
     Dates: start: 1998

REACTIONS (49)
  - Intramedullary rod insertion [Unknown]
  - Intraductal proliferative breast lesion [Unknown]
  - Knee arthroplasty [Unknown]
  - Knee arthroplasty [Unknown]
  - Fractured sacrum [Unknown]
  - Anaemia postoperative [Recovering/Resolving]
  - Spinal fusion surgery [Unknown]
  - Pneumonia pneumococcal [Unknown]
  - Hypokalaemia [Unknown]
  - Renal failure [Unknown]
  - Nausea [Recovering/Resolving]
  - Gastritis [Recovering/Resolving]
  - Femur fracture [Unknown]
  - Osteoporosis [Not Recovered/Not Resolved]
  - Anxiety [Not Recovered/Not Resolved]
  - Depression [Not Recovered/Not Resolved]
  - Malignant breast lump removal [Unknown]
  - Radiotherapy to breast [Unknown]
  - Hiatus hernia [Unknown]
  - Migraine [Unknown]
  - Hypertension [Not Recovered/Not Resolved]
  - Appendicectomy [Unknown]
  - Osteopenia [Unknown]
  - Osteoarthritis [Unknown]
  - Dyspnoea [Unknown]
  - Foot operation [Unknown]
  - Tonsillectomy [Unknown]
  - Scoliosis [Unknown]
  - Kyphosis [Unknown]
  - Ovarian cyst [Unknown]
  - Knee deformity [Unknown]
  - Joint dislocation [Unknown]
  - Bunion operation [Unknown]
  - Synovial cyst [Unknown]
  - Chest pain [Unknown]
  - Tachycardia [Unknown]
  - Aortic arteriosclerosis [Unknown]
  - Hepatic cyst [Unknown]
  - Nephrolithiasis [Unknown]
  - Incision site infection [Unknown]
  - Urinary tract infection [Unknown]
  - Synovitis [Unknown]
  - Oedema [Unknown]
  - Osteoarthritis [Unknown]
  - Spinal osteoarthritis [Unknown]
  - Chronic obstructive pulmonary disease [Not Recovered/Not Resolved]
  - Oedema peripheral [Unknown]
  - Diarrhoea [Unknown]
  - Gastrooesophageal reflux disease [Unknown]
